FAERS Safety Report 12507068 (Version 1)
Quarter: 2016Q2

REPORT INFORMATION
  Report Type: Spontaneous
  Country: DE (occurrence: DE)
  Receive Date: 20160629
  Receipt Date: 20160629
  Transmission Date: 20160815
  Serious: Yes (Other)
  Sender: FDA-Public Use
  Company Number: DE-BAUSCH-BL-2016-015264

PATIENT
  Age: 39 Year
  Sex: Female

DRUGS (6)
  1. PREDNISOLONE. [Concomitant]
     Active Substance: PREDNISOLONE
     Indication: HEPATITIS INFECTIOUS
  2. TACROLIMUS. [Concomitant]
     Active Substance: TACROLIMUS
     Indication: HEPATITIS INFECTIOUS
  3. SIROLIMUS. [Concomitant]
     Active Substance: SIROLIMUS
     Indication: HEPATITIS INFECTIOUS
  4. RIBAVIRIN. [Suspect]
     Active Substance: RIBAVIRIN
     Indication: HEPATITIS INFECTIOUS
     Dosage: AN INITIAL DAILY DOSE OF 600-1000MG
     Route: 048
  5. EVEROLIMUS [Concomitant]
     Active Substance: EVEROLIMUS
     Indication: HEPATITIS INFECTIOUS
  6. MYCOPHENOLATE MOFETIL. [Concomitant]
     Active Substance: MYCOPHENOLATE MOFETIL
     Indication: HEPATITIS INFECTIOUS

REACTIONS (1)
  - Treatment failure [Unknown]
